FAERS Safety Report 9410499 (Version 1)
Quarter: 2013Q3

REPORT INFORMATION
  Report Type: Spontaneous
  Country: US (occurrence: None)
  Receive Date: 20130718
  Receipt Date: 20130718
  Transmission Date: 20140515
  Serious: Yes (Hospitalization)
  Sender: FDA-Public Use
  Company Number: None

PATIENT
  Age: 60 Year
  Sex: Female

DRUGS (3)
  1. VIVELLE [Suspect]
     Route: 048
  2. PAROXETINE [Concomitant]
  3. BUPROPION [Concomitant]

REACTIONS (1)
  - Pulmonary embolism [None]
